FAERS Safety Report 6079180-0 (Version None)
Quarter: 2009Q1

REPORT INFORMATION
  Report Type: 
  Country: None (occurrence: None)
  Receive Date: 20090216
  Receipt Date: 20090206
  Transmission Date: 20090719
  Serious: Yes (Hospitalization)
  Sender: FDA-Public Use
  Company Number: B0557506A

PATIENT
  Sex: Female

DRUGS (3)
  1. SERETIDE [Suspect]
     Indication: DRUG USE FOR UNKNOWN INDICATION
     Route: 055
     Dates: start: 20081020, end: 20090101
  2. SPIRIVA [Concomitant]
     Route: 055
     Dates: start: 20040309
  3. COMBIVENT NEBULIZER [Concomitant]
     Route: 055

REACTIONS (2)
  - ADVERSE EVENT [None]
  - MALAISE [None]
